FAERS Safety Report 8012231-2 (Version None)
Quarter: 2011Q4

REPORT INFORMATION
  Report Type: 
  Country: None (occurrence: None)
  Receive Date: 20111228
  Receipt Date: 20111220
  Transmission Date: 20120403
  Serious: Yes (Hospitalization, Other)
  Sender: FDA-Public Use
  Company Number: US-ROCHE-1013763

PATIENT
  Age: 57 Year
  Sex: Female
  Weight: 41.73 kg

DRUGS (14)
  1. AMLODIPINE BESYLATE [Suspect]
     Indication: PRODUCT USED FOR UNKNOWN INDICATION
  2. CLONIDINE [Suspect]
     Indication: PRODUCT USED FOR UNKNOWN INDICATION
  3. PANTOPRAZOLE SODIUM [Suspect]
     Indication: PRODUCT USED FOR UNKNOWN INDICATION
  4. SIMVASTATIN [Suspect]
     Indication: PRODUCT USED FOR UNKNOWN INDICATION
  5. ONDANSETRON HCL [Suspect]
     Indication: PRODUCT USED FOR UNKNOWN INDICATION
  6. CISPLATIN [Suspect]
     Indication: OVARIAN EPITHELIAL CANCER
     Dosage: ON DAY 2
     Route: 042
     Dates: start: 20110908
  7. PACLITAXEL [Suspect]
     Dosage: ON DAY 8 OF CYCLE 2
     Route: 042
  8. COMPAZINE [Concomitant]
  9. ATIVAN [Concomitant]
  10. PACLITAXEL [Suspect]
     Indication: OVARIAN EPITHELIAL CANCER
     Dosage: ON DAY 1 OF CYCLE 1
     Route: 042
     Dates: start: 20110908
  11. METOCLOPRAMIDE HCL [Suspect]
     Indication: PRODUCT USED FOR UNKNOWN INDICATION
  12. AVASTIN [Suspect]
     Indication: OVARIAN EPITHELIAL CANCER
     Dosage: OVER 30-90 MIN ON DAY 1, BEGINNING WITH CYCLE 2.
     Route: 042
     Dates: start: 20110908
  13. ALENDRONATE SODIUM [Suspect]
     Indication: PRODUCT USED FOR UNKNOWN INDICATION
  14. METOPROLOL SUCCINATE EXTENDED RELEASE [Concomitant]

REACTIONS (10)
  - WHITE BLOOD CELL COUNT DECREASED [None]
  - HYPOCALCAEMIA [None]
  - ABDOMINAL PAIN [None]
  - HYPOPHOSPHATAEMIA [None]
  - HEADACHE [None]
  - HYPERTENSION [None]
  - VOMITING [None]
  - NAUSEA [None]
  - NEUTROPHIL COUNT DECREASED [None]
  - HYPOKALAEMIA [None]
